FAERS Safety Report 15298410 (Version 4)
Quarter: 2018Q3

REPORT INFORMATION
  Report Type: Spontaneous
  Country: US (occurrence: US)
  Receive Date: 20180820
  Receipt Date: 20180921
  Transmission Date: 20181010
  Serious: Yes (Death, Other)
  Sender: FDA-Public Use
  Company Number: US-CELGENEUS-USA-20180709685

PATIENT
  Age: 56 Year
  Sex: Male

DRUGS (2)
  1. REVLIMID [Suspect]
     Active Substance: LENALIDOMIDE
     Indication: PLASMA CELL MYELOMA
     Dosage: 25 MILLIGRAM
     Route: 048
     Dates: start: 201806
  2. REVLIMID [Suspect]
     Active Substance: LENALIDOMIDE
     Dosage: 25 MILLIGRAM
     Route: 048

REACTIONS (7)
  - Urticaria [Not Recovered/Not Resolved]
  - Plasma cell myeloma [Fatal]
  - Pulmonary embolism [Fatal]
  - Pulmonary oedema [Unknown]
  - Vomiting [Unknown]
  - Immune system disorder [Unknown]
  - Ammonia [Unknown]

NARRATIVE: CASE EVENT DATE: 2018
